FAERS Safety Report 4358332-1 (Version None)
Quarter: 2004Q2

REPORT INFORMATION
  Report Type: 
  Country: None (occurrence: None)
  Receive Date: 20040514
  Receipt Date: 20031126
  Transmission Date: 20050107
  Serious: Yes (Other)
  Sender: FDA-Public Use
  Company Number: PHNR2003AU01650

PATIENT
  Age: 15 Year
  Sex: Male

DRUGS (1)
  1. FAMVIR [Suspect]
     Indication: HERPES ZOSTER OPHTHALMIC
     Dosage: 250 MG, BID
     Route: 048
     Dates: start: 20030120, end: 20031126

REACTIONS (1)
  - PHOTOSENSITIVITY REACTION [None]
